FAERS Safety Report 8211804-1 (Version None)
Quarter: 2012Q1

REPORT INFORMATION
  Report Type: 
  Country: None (occurrence: None)
  Receive Date: 20120315
  Receipt Date: 20120105
  Transmission Date: 20120608
  Serious: Yes (Other)
  Sender: FDA-Public Use
  Company Number: CA-PFIZER INC-2012067156

PATIENT

DRUGS (1)
  1. VENLAFAXINE HCL [Suspect]

REACTIONS (3)
  - CONFUSIONAL STATE [None]
  - FALL [None]
  - FRACTURE [None]
